FAERS Safety Report 5600483-5 (Version None)
Quarter: 2008Q1

REPORT INFORMATION
  Report Type: 
  Country: None (occurrence: None)
  Receive Date: 20080123
  Receipt Date: 20070425
  Transmission Date: 20080703
  Serious: No
  Sender: FDA-Public Use
  Company Number: US-ABBOTT-07P-163-0366457-00

PATIENT
  Sex: Female

DRUGS (6)
  1. DEPACON [Suspect]
     Indication: CONVULSION
     Route: 042
     Dates: start: 20070424
  2. DEPACON [Suspect]
     Dosage: 1200MG LOADING DOSE, THEN 500MG/5ML.
     Route: 042
     Dates: start: 20070424, end: 20070424
  3. CLONIDINE [Concomitant]
     Indication: DRUG USE FOR UNKNOWN INDICATION
  4. CLOPIDOGREL BISULFATE [Concomitant]
     Indication: DRUG USE FOR UNKNOWN INDICATION
  5. LEVOTHYROXINE SODIUM [Concomitant]
     Indication: DRUG USE FOR UNKNOWN INDICATION
  6. PHENYTOIN SODIUM [Concomitant]
     Indication: DRUG USE FOR UNKNOWN INDICATION

REACTIONS (1)
  - EXTRAVASATION [None]
